FAERS Safety Report 13958230 (Version 1)
Quarter: 2017Q3

REPORT INFORMATION
  Report Type: Spontaneous
  Country: US (occurrence: US)
  Receive Date: 20170912
  Receipt Date: 20170912
  Transmission Date: 20171128
  Serious: Yes (Life-Threatening)
  Sender: FDA-Public Use
  Company Number: PHHY2017US132936

PATIENT
  Age: 74 Year
  Sex: Female

DRUGS (1)
  1. LEFLUNOMIDE. [Suspect]
     Active Substance: LEFLUNOMIDE
     Indication: RHEUMATOID ARTHRITIS
     Route: 065

REACTIONS (12)
  - Septic shock [Recovering/Resolving]
  - Tachycardia [Recovering/Resolving]
  - Tenderness [Recovering/Resolving]
  - Acute kidney injury [Recovering/Resolving]
  - Tachypnoea [Recovering/Resolving]
  - Joint effusion [Recovering/Resolving]
  - Staphylococcal infection [Recovering/Resolving]
  - Somnolence [Recovering/Resolving]
  - Hypoxia [Recovering/Resolving]
  - Drug level increased [Recovering/Resolving]
  - Malaise [Recovering/Resolving]
  - Hypotension [Recovering/Resolving]
